FAERS Safety Report 22660956 (Version 1)
Quarter: 2023Q2

REPORT INFORMATION
  Report Type: Spontaneous
  Country: JP (occurrence: JP)
  Receive Date: 20230630
  Receipt Date: 20230630
  Transmission Date: 20230722
  Serious: Yes (Other)
  Sender: FDA-Public Use
  Company Number: JP-SUN PHARMACEUTICAL INDUSTRIES LTD-2023R1-396971

PATIENT
  Age: 70 Year
  Sex: Male

DRUGS (3)
  1. CISPLATIN [Suspect]
     Active Substance: CISPLATIN
     Indication: Tongue cancer metastatic
     Dosage: 150 MILLIGRAM/SQ. METER
     Route: 042
  2. DOCETAXEL [Suspect]
     Active Substance: DOCETAXEL
     Indication: Tongue cancer metastatic
     Dosage: 60 MILLIGRAM/SQ. METER
     Route: 065
  3. CETUXIMAB [Suspect]
     Active Substance: CETUXIMAB
     Indication: Tongue cancer metastatic
     Dosage: UNK, WEEKLY
     Route: 042

REACTIONS (3)
  - Stomatitis [Unknown]
  - Cheilitis [Unknown]
  - Radiation skin injury [Unknown]
